FAERS Safety Report 10037073 (Version 2)
Quarter: 2014Q1

REPORT INFORMATION
  Report Type: Spontaneous
  Country: US (occurrence: US)
  Receive Date: 20140326
  Receipt Date: 20140326
  Transmission Date: 20141002
  Serious: Yes (Hospitalization)
  Sender: FDA-Public Use
  Company Number: US-RANBAXY-2014US-78945

PATIENT
  Age: 80 Year
  Sex: Female

DRUGS (2)
  1. ROPINIROLE [Suspect]
     Indication: PRODUCT USED FOR UNKNOWN INDICATION
     Dosage: 0.25 TO 0.50 MG DAILY
     Route: 065
  2. KAVA [Interacting]
     Indication: INSOMNIA
     Dosage: UNK
     Route: 048

REACTIONS (5)
  - Drug interaction [Unknown]
  - Toxicity to various agents [Unknown]
  - Acute psychosis [Recovering/Resolving]
  - Hallucination, visual [Recovering/Resolving]
  - Delusion [Recovering/Resolving]
